FAERS Safety Report 5201385-9 (Version None)
Quarter: 2007Q1

REPORT INFORMATION
  Report Type: 
  Country: None (occurrence: None)
  Receive Date: 20070108
  Receipt Date: 20061227
  Transmission Date: 20070707
  Serious: Yes (Hospitalization)
  Sender: FDA-Public Use
  Company Number: FR-PFIZER INC-A201878

PATIENT
  Age: 42 Year
  Sex: Male
  Weight: 59 kg

DRUGS (3)
  1. AZITHROMYCIN [Suspect]
     Indication: PROPHYLAXIS
     Dosage: DAILY DOSE:600MG-FREQ:SEMI-WEEKLY
  2. TEGRETOL [Suspect]
     Indication: NEUROMYOPATHY
     Dosage: DAILY DOSE:400MG
     Route: 048
     Dates: start: 20011206, end: 20011213
  3. SULFAMETHOXAZOLE + TRIMETHOPRIM [Concomitant]

REACTIONS (3)
  - ERYTHEMA MULTIFORME [None]
  - PRURITUS [None]
  - PYREXIA [None]
